FAERS Safety Report 12452828 (Version 1)
Quarter: 2016Q2

REPORT INFORMATION
  Report Type: Spontaneous
  Country: GB (occurrence: GB)
  Receive Date: 20160609
  Receipt Date: 20160609
  Transmission Date: 20160815
  Serious: Yes (Other)
  Sender: FDA-Public Use
  Company Number: GB-TEVA-665867ACC

PATIENT
  Age: 35 Year
  Sex: Female
  Weight: 61.23 kg

DRUGS (6)
  1. LEVOTHYROXINE. [Concomitant]
     Active Substance: LEVOTHYROXINE
  2. BACLOFEN. [Suspect]
     Active Substance: BACLOFEN
     Indication: MUSCLE SPASTICITY
     Route: 048
  3. LYRICA [Concomitant]
     Active Substance: PREGABALIN
  4. CETIRIZINE [Concomitant]
     Active Substance: CETIRIZINE HYDROCHLORIDE
  5. DIAZEPAM. [Concomitant]
     Active Substance: DIAZEPAM
  6. OMEPRAZOLE. [Concomitant]
     Active Substance: OMEPRAZOLE

REACTIONS (4)
  - Mouth ulceration [Not Recovered/Not Resolved]
  - Swollen tongue [Not Recovered/Not Resolved]
  - Arthralgia [Recovering/Resolving]
  - Migraine [Recovering/Resolving]
